FAERS Safety Report 19762807 (Version 1)
Quarter: 2021Q3

REPORT INFORMATION
  Report Type: Spontaneous
  Country: CN (occurrence: CN)
  Receive Date: 20210830
  Receipt Date: 20210830
  Transmission Date: 20211014
  Serious: Yes (Hospitalization, Other)
  Sender: FDA-Public Use
  Company Number: CN-009507513-2108CHN006951

PATIENT
  Age: 69 Year
  Sex: Male
  Weight: 66 kg

DRUGS (3)
  1. KEYTRUDA [Suspect]
     Active Substance: PEMBROLIZUMAB
     Indication: LUNG CANCER METASTATIC
     Dosage: 100MG, ONCE DAILY
     Route: 041
     Dates: start: 20210629, end: 20210629
  2. PACLITAXEL. [Suspect]
     Active Substance: PACLITAXEL
     Dosage: UNK
     Route: 041
     Dates: start: 20210629, end: 2021
  3. NEDAPLATIN [Suspect]
     Active Substance: NEDAPLATIN
     Dosage: UNK
     Route: 041
     Dates: start: 20210629, end: 2021

REACTIONS (5)
  - Malignant neoplasm progression [Not Recovered/Not Resolved]
  - Underdose [Unknown]
  - Interstitial lung disease [Not Recovered/Not Resolved]
  - Respiratory failure [Not Recovered/Not Resolved]
  - Pleural effusion [Not Recovered/Not Resolved]

NARRATIVE: CASE EVENT DATE: 20210629
